FAERS Safety Report 12174687 (Version 2)
Quarter: 2016Q2

REPORT INFORMATION
  Report Type: Report from Study
  Country: US (occurrence: US)
  Receive Date: 20160313
  Receipt Date: 20160520
  Transmission Date: 20160815
  Serious: Yes (Hospitalization, Other)
  Sender: FDA-Public Use
  Company Number: US-AMGEN-USASL2016029674

PATIENT
  Age: 78 Year
  Sex: Female

DRUGS (1)
  1. ENBREL [Suspect]
     Active Substance: ETANERCEPT
     Indication: PSORIATIC ARTHROPATHY
     Dosage: UNK
     Route: 065
     Dates: start: 20010701

REACTIONS (12)
  - Swollen tongue [Recovering/Resolving]
  - Pyrexia [Recovering/Resolving]
  - Skin ulcer [Unknown]
  - Wound haemorrhage [Recovering/Resolving]
  - Nasopharyngitis [Unknown]
  - Joint swelling [Unknown]
  - Knee arthroplasty [Recovering/Resolving]
  - Swelling face [Recovering/Resolving]
  - Wound [Recovering/Resolving]
  - Swelling [Unknown]
  - Psoriasis [Unknown]
  - Pain [Unknown]

NARRATIVE: CASE EVENT DATE: 200702
